FAERS Safety Report 10944555 (Version 1)
Quarter: 2015Q1

REPORT INFORMATION
  Report Type: Spontaneous
  Country: JP (occurrence: None)
  Receive Date: 20150318
  Receipt Date: 20150318
  Transmission Date: 20150721
  Serious: Yes (Other)
  Sender: FDA-Public Use
  Company Number: JP-20150037

PATIENT
  Age: 65 Year
  Sex: Male

DRUGS (2)
  1. LIPIODOL ULTRA FLUID [Suspect]
     Active Substance: ETHIODIZED OIL
     Indication: INFUSION
     Route: 013
  2. IA-CALL (CISPLATIN) (CISPLATIN) [Concomitant]
     Active Substance: CISPLATIN

REACTIONS (3)
  - Product use issue [None]
  - Off label use [None]
  - Shock [None]
